FAERS Safety Report 9973068 (Version 2)
Quarter: 2014Q1

REPORT INFORMATION
  Report Type: Report from Study
  Country: CL (occurrence: CL)
  Receive Date: 20140306
  Receipt Date: 20140306
  Transmission Date: 20141002
  Serious: Yes (Other)
  Sender: FDA-Public Use
  Company Number: CL-BRISTOL-MYERS SQUIBB COMPANY-19841378

PATIENT
  Age: 47 Year
  Sex: Female

DRUGS (8)
  1. ORENCIA [Suspect]
     Indication: RHEUMATOID ARTHRITIS
     Dosage: 2 VIAL, INTERRUPTED ON: 18-NOV-2013?EVERY 28 DAYS
     Route: 042
     Dates: start: 20111125
  2. FLIXONASE [Concomitant]
  3. GUTRON [Concomitant]
  4. METFORMIN [Concomitant]
  5. PARACETAMOL [Concomitant]
  6. EUTIROX [Concomitant]
  7. IRON [Concomitant]
  8. TORECAN [Concomitant]

REACTIONS (5)
  - Gallbladder polyp [Recovering/Resolving]
  - Influenza [Not Recovered/Not Resolved]
  - Abdominal pain upper [Recovering/Resolving]
  - Vomiting [Recovering/Resolving]
  - Anaemia [Recovering/Resolving]
